FAERS Safety Report 17346982 (Version 1)
Quarter: 2020Q1

REPORT INFORMATION
  Report Type: Report from Study
  Country: US (occurrence: US)
  Receive Date: 20200129
  Receipt Date: 20200129
  Transmission Date: 20200409
  Serious: No
  Sender: FDA-Public Use
  Company Number: US-EXELIXIS-CABO-19022259

PATIENT
  Sex: Male

DRUGS (1)
  1. CABOMETYX [Suspect]
     Active Substance: CABOZANTINIB S-MALATE
     Indication: NON-HODGKIN^S LYMPHOMA
     Dosage: 60 MG, QD
     Route: 048

REACTIONS (2)
  - Adverse drug reaction [Not Recovered/Not Resolved]
  - Off label use [Unknown]
